FAERS Safety Report 7686993-8 (Version None)
Quarter: 2011Q3

REPORT INFORMATION
  Report Type: 
  Country: None (occurrence: None)
  Receive Date: 20110816
  Receipt Date: 20110812
  Transmission Date: 20111222
  Serious: Yes (Other)
  Sender: FDA-Public Use
  Company Number: US-PFIZER INC-2011186283

PATIENT
  Sex: Male
  Weight: 87.528 kg

DRUGS (9)
  1. SEROQUEL [Concomitant]
     Indication: INSOMNIA
     Dosage: 25 MG, AS NEEDED
  2. XANAX [Concomitant]
     Dosage: UNK
  3. PRISTIQ [Suspect]
     Indication: BIPOLAR DISORDER
     Dosage: 200 MG, 1X/DAY
     Route: 048
     Dates: start: 20110101, end: 20110101
  4. PRISTIQ [Suspect]
     Indication: OPPOSITIONAL DEFIANT DISORDER
  5. PRISTIQ [Suspect]
  6. AMBIEN [Concomitant]
     Dosage: UNK
  7. ILOPERIDONE [Concomitant]
     Dosage: 6 MG, UNK
  8. PRISTIQ [Suspect]
     Indication: SCHIZOAFFECTIVE DISORDER
  9. PRISTIQ [Suspect]
     Indication: ATTENTION DEFICIT/HYPERACTIVITY DISORDER

REACTIONS (4)
  - STRESS [None]
  - ABNORMAL BEHAVIOUR [None]
  - AGGRESSION [None]
  - MANIA [None]
